FAERS Safety Report 8978772 (Version 1)
Quarter: 2012Q4

REPORT INFORMATION
  Report Type: 
  Country: US (occurrence: US)
  Receive Date: 20121221
  Receipt Date: 20121221
  Transmission Date: 20130627
  Serious: Yes (Other)
  Sender: FDA-Public Use
  Company Number: US-ROXANE LABORATORIES, INC.-2012-RO-02606RO

PATIENT
  Age: 92 Year

DRUGS (2)
  1. PREDNISONE [Suspect]
     Indication: MULTIPLE MYELOMA
     Dosage: 20 mg
     Route: 048
     Dates: start: 20111212, end: 20120220
  2. MELPHALAN [Suspect]
     Indication: MULTIPLE MYELOMA
     Dosage: 2 mg

REACTIONS (1)
  - Pneumonia [Unknown]
